FAERS Safety Report 8610082-9 (Version None)
Quarter: 2012Q3

REPORT INFORMATION
  Report Type: 
  Country: None (occurrence: None)
  Receive Date: 20120822
  Receipt Date: 20120814
  Transmission Date: 20120928
  Serious: Yes (Other)
  Sender: FDA-Public Use
  Company Number: US-BIOGENIDEC-2012BI032068

PATIENT
  Sex: Female

DRUGS (1)
  1. TYSABRI [Suspect]
     Indication: MULTIPLE SCLEROSIS
     Route: 042
     Dates: start: 20110209

REACTIONS (9)
  - VARICES OESOPHAGEAL [None]
  - HYPERHIDROSIS [None]
  - SPLENOMEGALY [None]
  - NON-ALCOHOLIC STEATOHEPATITIS [None]
  - GASTROINTESTINAL HAEMORRHAGE [None]
  - OVERWEIGHT [None]
  - LOCALISED INTRAABDOMINAL FLUID COLLECTION [None]
  - PORTAL HYPERTENSION [None]
  - DYSPNOEA [None]
